FAERS Safety Report 7798826-X (Version None)
Quarter: 2011Q4

REPORT INFORMATION
  Report Type: 
  Country: None (occurrence: None)
  Receive Date: 20111005
  Receipt Date: 20111005
  Transmission Date: 20120403
  Serious: Yes (Other)
  Sender: FDA-Public Use
  Company Number: None

PATIENT
  Sex: Female
  Weight: 92.5 kg

DRUGS (5)
  1. DOCETAXEL [Suspect]
     Indication: BREAST CANCER
     Dosage: 75 MG/M2=155 MG EVERY 2 WEEKS IV
     Route: 042
     Dates: start: 20110824
  2. DOCETAXEL [Suspect]
     Indication: BREAST CANCER
     Dosage: 75 MG/M2=155 MG EVERY 2 WEEKS IV
     Route: 042
     Dates: start: 20110907
  3. CYCLOSPORINE [Suspect]
     Indication: BREAST CANCER
     Dosage: 600 MG/M2=1236 MG EVERY 2 WEEKS IV
     Route: 042
     Dates: start: 20110907
  4. CYCLOSPORINE [Suspect]
     Indication: BREAST CANCER
     Dosage: 600 MG/M2=1236 MG EVERY 2 WEEKS IV
     Route: 042
     Dates: start: 20110824
  5. PEGFILGRASTIM [Concomitant]

REACTIONS (3)
  - OEDEMA PERIPHERAL [None]
  - NEUTROPENIA [None]
  - PALMAR-PLANTAR ERYTHRODYSAESTHESIA SYNDROME [None]
